FAERS Safety Report 4752126-0 (Version None)
Quarter: 2005Q3

REPORT INFORMATION
  Report Type: 
  Country: None (occurrence: None)
  Receive Date: 20050824
  Receipt Date: 20050824
  Transmission Date: 20060218
  Serious: Yes (Other)
  Sender: FDA-Public Use
  Company Number: None

PATIENT
  Age: 22 Year
  Sex: Male
  Weight: 131.9967 kg

DRUGS (7)
  1. RISPERIDONE [Suspect]
     Indication: PSYCHOTIC DISORDER
     Dosage: 2-6MG  DAILY  PO
     Route: 048
     Dates: start: 20040520, end: 20050321
  2. PREDNISONE TAB [Concomitant]
  3. ZIPRASIDONE [Concomitant]
  4. PANTOPRAZOLE [Concomitant]
  5. METOPROLOL [Concomitant]
  6. DIVALPROEX SODIUM [Concomitant]
  7. ESCITALOPRAM OXALATE [Concomitant]

REACTIONS (2)
  - BLOOD GLUCOSE INCREASED [None]
  - GLYCOSYLATED HAEMOGLOBIN INCREASED [None]
